FAERS Safety Report 23173496 (Version 2)
Quarter: 2023Q4

REPORT INFORMATION
  Report Type: Spontaneous
  Country: BR (occurrence: BR)
  Receive Date: 20231111
  Receipt Date: 20231117
  Transmission Date: 20240110
  Serious: Yes (Death, Life-Threatening, Hospitalization, Other)
  Sender: FDA-Public Use
  Company Number: BR-MLMSERVICE-20231101-4631723-1

PATIENT
  Age: 40 Year
  Sex: Female
  Weight: 79.4 kg

DRUGS (3)
  1. PRIMAQUINE [Suspect]
     Active Substance: PRIMAQUINE
     Indication: Plasmodium vivax infection
     Dosage: 30 MG, QD
     Dates: start: 20191213, end: 20191220
  2. CHLOROQUINE [Suspect]
     Active Substance: CHLOROQUINE
     Indication: Plasmodium vivax infection
     Dosage: 450 MG-SECOND AND THIRD DAYS
     Dates: start: 20191214
  3. CHLOROQUINE [Suspect]
     Active Substance: CHLOROQUINE
     Dosage: 600 MG, QD
     Dates: start: 20191213, end: 20191213

REACTIONS (8)
  - Shock [Fatal]
  - Metabolic disorder [Fatal]
  - Acute respiratory distress syndrome [Fatal]
  - Tachypnoea [Fatal]
  - Rales [Fatal]
  - Hypoxia [Fatal]
  - Cardiac arrest [Fatal]
  - Hepatosplenomegaly [Unknown]

NARRATIVE: CASE EVENT DATE: 20191201
